FAERS Safety Report 5373399-X (Version None)
Quarter: 2007Q2

REPORT INFORMATION
  Report Type: 
  Country: None (occurrence: None)
  Receive Date: 20070628
  Receipt Date: 20070621
  Transmission Date: 20071010
  Serious: Yes (Hospitalization)
  Sender: FDA-Public Use
  Company Number: BE-AVENTIS-200715613GDDC

PATIENT
  Age: 75 Year
  Sex: Male

DRUGS (1)
  1. TAXOTERE [Suspect]
     Route: 042
     Dates: start: 20070501, end: 20070501

REACTIONS (2)
  - MONOPLEGIA [None]
  - NEUROPATHY [None]
